FAERS Safety Report 4866256-6 (Version None)
Quarter: 2005Q4

REPORT INFORMATION
  Report Type: 
  Country: None (occurrence: None)
  Receive Date: 20051227
  Receipt Date: 20051223
  Transmission Date: 20060501
  Serious: Yes (Death)
  Sender: FDA-Public Use
  Company Number: PHEH2005US13838

PATIENT
  Age: 91 Year
  Sex: Female

DRUGS (1)
  1. GENTEAL (NVO) [Suspect]

REACTIONS (2)
  - EYE PRURITUS [None]
  - LARGE INTESTINAL OBSTRUCTION REDUCTION [None]
